FAERS Safety Report 5254277-3 (Version None)
Quarter: 2007Q1

REPORT INFORMATION
  Report Type: 
  Country: None (occurrence: None)
  Receive Date: 20070302
  Receipt Date: 20070221
  Transmission Date: 20070707
  Serious: Yes (Hospitalization)
  Sender: FDA-Public Use
  Company Number: FR-GLAXOSMITHKLINE-B0459177A

PATIENT
  Age: 42 Year
  Sex: Male
  Weight: 70 kg

DRUGS (8)
  1. ZIAGEN [Suspect]
     Indication: HIV INFECTION
     Dosage: 2UNIT PER DAY
     Route: 048
     Dates: start: 20060907
  2. NORVIR [Suspect]
     Indication: HIV INFECTION
     Dosage: 100MG PER DAY
     Route: 048
     Dates: start: 20060907
  3. VIDEX [Suspect]
     Indication: HIV INFECTION
     Dosage: 400MG PER DAY
     Route: 048
     Dates: start: 20060907
  4. REYATAZ [Suspect]
     Indication: HIV INFECTION
     Dosage: 300MG PER DAY
     Route: 048
     Dates: start: 20060907
  5. TRIZIVIR [Suspect]
     Indication: HIV INFECTION
     Route: 065
     Dates: start: 20020101, end: 20060907
  6. EFFEXOR [Concomitant]
     Indication: DEPRESSION
     Route: 065
  7. TERCIAN [Concomitant]
     Indication: DEPRESSION
     Route: 065
  8. IMOVANE [Concomitant]
     Indication: DEPRESSION
     Route: 065

REACTIONS (7)
  - ANAEMIA FOLATE DEFICIENCY [None]
  - ANAEMIA MACROCYTIC [None]
  - BLOOD LACTATE DEHYDROGENASE INCREASED [None]
  - HAPTOGLOBIN DECREASED [None]
  - LYMPHADENOPATHY [None]
  - MACROCYTOSIS [None]
  - MYALGIA [None]
